FAERS Safety Report 4897691-8 (Version None)
Quarter: 2006Q1

REPORT INFORMATION
  Report Type: 
  Country: None (occurrence: None)
  Receive Date: 20060130
  Receipt Date: 20060130
  Transmission Date: 20060701
  Serious: Yes (Hospitalization)
  Sender: FDA-Public Use
  Company Number: None

PATIENT
  Sex: Female
  Weight: 92.5338 kg

DRUGS (7)
  1. ZEVALIN [Suspect]
     Indication: NON-HODGKIN'S LYMPHOMA
     Dosage: IN-ZEV: 5.0 MCI; YZEV 0.3 MCI/KG I-Z X1, YZ X 1 IV BOLUS
     Route: 040
     Dates: start: 20060109, end: 20060118
  2. RITUXIMAB GENENTECH [Suspect]
     Indication: NON-HODGKIN'S LYMPHOMA
     Dosage: 375 MG/M2 THEN 250 MG/M2 W/ ZEV Q 3 WEEKS IV DRIP
     Route: 041
     Dates: start: 20051019, end: 20060118
  3. ALBUTEROL [Concomitant]
  4. DIOVAN [Concomitant]
  5. NORVASC [Concomitant]
  6. GUAIFENEX [Concomitant]
  7. ADAIR [Concomitant]

REACTIONS (9)
  - CHEST PAIN [None]
  - COUGH [None]
  - DYSPNOEA [None]
  - HYPERHIDROSIS [None]
  - NAUSEA [None]
  - RESPIRATORY RATE INCREASED [None]
  - RHONCHI [None]
  - SINUS TACHYCARDIA [None]
  - WHEEZING [None]
